FAERS Safety Report 5695192-0 (Version None)
Quarter: 2008Q2

REPORT INFORMATION
  Report Type: 
  Country: None (occurrence: None)
  Receive Date: 20080404
  Receipt Date: 20080323
  Transmission Date: 20081010
  Serious: Yes (Other)
  Sender: FDA-Public Use
  Company Number: US-PFIZER INC-2008026988

PATIENT

DRUGS (3)
  1. LYRICA [Suspect]
     Indication: FACIAL PAIN
  2. NEURONTIN [Suspect]
     Dosage: DAILY DOSE:1200MG
  3. TRAMADOL HCL [Concomitant]
     Indication: PAIN

REACTIONS (2)
  - DISTURBANCE IN ATTENTION [None]
  - MENTAL STATUS CHANGES [None]
